FAERS Safety Report 7834741-0 (Version None)
Quarter: 2011Q4

REPORT INFORMATION
  Report Type: 
  Country: None (occurrence: None)
  Receive Date: 20111024
  Receipt Date: 20100625
  Transmission Date: 20120403
  Serious: Yes (Hospitalization)
  Sender: FDA-Public Use
  Company Number: NL-TEVA-305992ISR

PATIENT
  Sex: Male
  Weight: 75 kg

DRUGS (5)
  1. PANTOPRAZOLE [Suspect]
     Indication: CORONARY ANGIOPLASTY
     Dosage: 40 MILLIGRAM;
     Dates: start: 20100312, end: 20100401
  2. SIMVASTATIN [Suspect]
     Indication: CORONARY ANGIOPLASTY
     Dates: start: 20100312, end: 20100401
  3. CLOPIDOGREL [Suspect]
     Indication: CORONARY ANGIOPLASTY
     Dates: start: 20100312, end: 20100401
  4. PERINDOPRIL TERT-BUTYLAMINE RP TABLET 2MG [Suspect]
     Indication: CORONARY ANGIOPLASTY
     Dates: start: 20100312, end: 20100401
  5. BISOPROLOL FUMARATE [Suspect]
     Indication: CORONARY ANGIOPLASTY
     Dosage: 1.25 MILLIGRAM;
     Dates: start: 20100312, end: 20100401

REACTIONS (1)
  - HEPATITIS CHOLESTATIC [None]
